FAERS Safety Report 5709931-3 (Version None)
Quarter: 2008Q2

REPORT INFORMATION
  Report Type: 
  Country: None (occurrence: None)
  Receive Date: 20080418
  Receipt Date: 20080408
  Transmission Date: 20081010
  Serious: Yes (Hospitalization, Other)
  Sender: FDA-Public Use
  Company Number: NO-ELI_LILLY_AND_COMPANY-NO200701003187

PATIENT
  Age: 16 Year
  Sex: Female
  Weight: 53 kg

DRUGS (4)
  1. STRATTERA [Suspect]
     Indication: ATTENTION DEFICIT/HYPERACTIVITY DISORDER
     Dosage: UNK, UNKNOWN
     Route: 048
  2. STRATTERA [Suspect]
     Dosage: 320 MG, DAILY (1/D)
     Route: 048
  3. CONCERTA [Concomitant]
     Dosage: 810 MG, DAILY (1/D)
     Route: 048
  4. RITALIN [Concomitant]
     Dosage: 50-100MG TAKEN ONCE
     Route: 048

REACTIONS (7)
  - CONSCIOUSNESS FLUCTUATING [None]
  - DIZZINESS [None]
  - DYSKINESIA [None]
  - HYPERTENSION [None]
  - OVERDOSE [None]
  - TACHYCARDIA [None]
  - TREMOR [None]
